FAERS Safety Report 24843984 (Version 2)
Quarter: 2025Q1

REPORT INFORMATION
  Report Type: Spontaneous
  Country: MY (occurrence: MY)
  Receive Date: 20250115
  Receipt Date: 20250131
  Transmission Date: 20250409
  Serious: Yes (Life-Threatening)
  Sender: RANBAXY
  Company Number: MY-SUN PHARMACEUTICAL INDUSTRIES LTD-2025R1-489172

PATIENT
  Sex: Female
  Weight: 2.6 kg

DRUGS (2)
  1. DIGOXIN [Suspect]
     Active Substance: DIGOXIN
     Indication: Foetal arrhythmia
     Dosage: 0.25 MILLIGRAM, BID
     Route: 064
  2. SOTALOL [Suspect]
     Active Substance: SOTALOL
     Indication: Foetal arrhythmia
     Dosage: 80 MILLIGRAM, DAILY
     Route: 064

REACTIONS (2)
  - Condition aggravated [Unknown]
  - Foetal exposure during pregnancy [Unknown]
